FAERS Safety Report 12216485 (Version 1)
Quarter: 2016Q1

REPORT INFORMATION
  Report Type: Spontaneous
  Country: US (occurrence: None)
  Receive Date: 20160328
  Receipt Date: 20160328
  Transmission Date: 20160526
  Serious: No
  Sender: FDA-Public Use
  Company Number: None

PATIENT
  Sex: Male

DRUGS (1)
  1. INTENSE THERAPY LIP BALM JACK BLACK [Suspect]
     Active Substance: AVOBENZONE\OCTINOXATE\PETROLATUM
     Indication: LIP DISORDER
     Dosage: 1 TUBE AS NEEDED APPLIED TO A SURFACE, USUALLY THE SKIN
     Route: 061
     Dates: start: 20160213, end: 20160214

REACTIONS (1)
  - Aphthous ulcer [None]

NARRATIVE: CASE EVENT DATE: 20160213
